FAERS Safety Report 24260588 (Version 1)
Quarter: 2024Q3

REPORT INFORMATION
  Report Type: Spontaneous
  Country: US (occurrence: US)
  Receive Date: 20240828
  Receipt Date: 20240828
  Transmission Date: 20241016
  Serious: No
  Sender: JOHNSON AND JOHNSON
  Company Number: US-JNJFOC-20240867586

PATIENT
  Age: 56 Year
  Sex: Male

DRUGS (29)
  1. MACITENTAN [Suspect]
     Active Substance: MACITENTAN
     Indication: Product used for unknown indication
     Route: 048
  2. TREPROSTINIL SODIUM [Suspect]
     Active Substance: TREPROSTINIL SODIUM
     Indication: Pulmonary arterial hypertension
     Route: 058
  3. TREPROSTINIL SODIUM [Suspect]
     Active Substance: TREPROSTINIL SODIUM
     Route: 058
     Dates: start: 2024
  4. TREPROSTINIL SODIUM [Suspect]
     Active Substance: TREPROSTINIL SODIUM
     Route: 058
     Dates: start: 20231107
  5. ATORVASTATIN CALCIUM [Concomitant]
     Active Substance: ATORVASTATIN CALCIUM
  6. FISH OIL [Concomitant]
     Active Substance: FISH OIL
  7. FAMOTIDINE [Concomitant]
     Active Substance: FAMOTIDINE
  8. TADALAFIL [Concomitant]
     Active Substance: TADALAFIL
  9. KETAMINE HYDROCHLORIDE [Concomitant]
     Active Substance: KETAMINE HYDROCHLORIDE
  10. LECITHIN [Concomitant]
     Active Substance: LECITHIN
  11. VITAMIN D3 [Concomitant]
     Active Substance: CHOLECALCIFEROL
  12. BIKTARVY [Concomitant]
     Active Substance: BICTEGRAVIR SODIUM\EMTRICITABINE\TENOFOVIR ALAFENAMIDE FUMARATE
  13. GABAPENTIN [Concomitant]
     Active Substance: GABAPENTIN
  14. LOMOTIL [Concomitant]
     Active Substance: ATROPINE SULFATE\DIPHENOXYLATE HYDROCHLORIDE
  15. TRAMADOL HCL [Concomitant]
     Active Substance: TRAMADOL HYDROCHLORIDE
  16. FLUTICASONE PROPIONATE [Concomitant]
     Active Substance: FLUTICASONE PROPIONATE
  17. CLONIDINE [Concomitant]
     Active Substance: CLONIDINE
  18. KETOPROFEN [Concomitant]
     Active Substance: KETOPROFEN
  19. LIDOCAINE HYDROCHLORIDE [Concomitant]
     Active Substance: LIDOCAINE HYDROCHLORIDE
  20. FUROSEMIDE [Concomitant]
     Active Substance: FUROSEMIDE
  21. AMITRIPTYLINE HYDROCHLORIDE [Concomitant]
     Active Substance: AMITRIPTYLINE HYDROCHLORIDE
  22. POLOXAMER [Concomitant]
     Active Substance: POLOXAMER
  23. ASPIRIN [Concomitant]
     Active Substance: ASPIRIN
  24. LOPERAMIDE [Concomitant]
     Active Substance: LOPERAMIDE
  25. SODIUM CHLORIDE [Concomitant]
     Active Substance: SODIUM CHLORIDE
  26. DOXYCYCLINE HYCLATE [Concomitant]
     Active Substance: DOXYCYCLINE HYCLATE
  27. SOTATERCEPT [Concomitant]
     Active Substance: SOTATERCEPT
  28. CEPHALEXIN [Concomitant]
     Active Substance: CEPHALEXIN
  29. AMBRISENTAN [Concomitant]
     Active Substance: AMBRISENTAN

REACTIONS (1)
  - Periorbital swelling [Recovered/Resolved]
